FAERS Safety Report 8327800-X (Version None)
Quarter: 2012Q2

REPORT INFORMATION
  Report Type: 
  Country: None (occurrence: None)
  Receive Date: 20120502
  Receipt Date: 20120430
  Transmission Date: 20120825
  Serious: No
  Sender: FDA-Public Use
  Company Number: US-PFIZER INC-2012106345

PATIENT

DRUGS (2)
  1. NEURONTIN [Suspect]
     Indication: ATTENTION DEFICIT/HYPERACTIVITY DISORDER
     Dosage: 4500 MG, 1X/DAY
  2. NEURONTIN [Suspect]
     Indication: ANXIETY
     Dosage: UNK
     Dates: start: 20110101

REACTIONS (1)
  - DRUG INEFFECTIVE [None]
